FAERS Safety Report 23884201 (Version 1)
Quarter: 2024Q2

REPORT INFORMATION
  Report Type: Report from Study
  Country: HN (occurrence: HN)
  Receive Date: 20240522
  Receipt Date: 20240522
  Transmission Date: 20240716
  Serious: Yes (Death, Other)
  Sender: FDA-Public Use
  Company Number: CO-BAYER-2024A003130

PATIENT
  Age: 73 Year
  Sex: Male

DRUGS (2)
  1. FINERENONE [Suspect]
     Active Substance: FINERENONE
     Indication: Chronic kidney disease
     Dosage: 20 MG, QD
     Route: 048
     Dates: start: 20230801, end: 20231129
  2. FINERENONE [Suspect]
     Active Substance: FINERENONE
     Indication: Chronic kidney disease
     Dosage: 10 MG
     Dates: start: 20230801, end: 20240502

REACTIONS (7)
  - Death [Fatal]
  - Blood creatinine increased [None]
  - Spinal synovial cyst [None]
  - Blood creatinine increased [Not Recovered/Not Resolved]
  - Osteomyelitis [None]
  - Spinal pain [Unknown]
  - Back pain [None]

NARRATIVE: CASE EVENT DATE: 20240501
